FAERS Safety Report 19268510 (Version 1)
Quarter: 2021Q2

REPORT INFORMATION
  Report Type: Spontaneous
  Country: US (occurrence: US)
  Receive Date: 20210517
  Receipt Date: 20210517
  Transmission Date: 20210717
  Serious: Yes (Hospitalization)
  Sender: FDA-Public Use
  Company Number: None

PATIENT
  Sex: Female

DRUGS (10)
  1. DIPHENHYDRAM [Concomitant]
  2. DOXYLAMINE SUCCINAT [Concomitant]
  3. MUPIROCIN. [Concomitant]
     Active Substance: MUPIROCIN
  4. ELIQUIS [Concomitant]
     Active Substance: APIXABAN
  5. MELATONIN [Concomitant]
     Active Substance: MELATONIN
  6. VALERIAN [Concomitant]
     Active Substance: VALERIAN
  7. LAVENDER [Concomitant]
     Active Substance: ALCOHOL
  8. BUTAL/ACETAM [Concomitant]
  9. L?THEANINE [Concomitant]
     Active Substance: DIETARY SUPPLEMENT
  10. ESBRIET [Suspect]
     Active Substance: PIRFENIDONE
     Indication: IDIOPATHIC PULMONARY FIBROSIS
     Route: 048
     Dates: start: 20190820

REACTIONS (2)
  - Cardiac operation [None]
  - Therapy interrupted [None]
